FAERS Safety Report 7383034-7 (Version None)
Quarter: 2011Q1

REPORT INFORMATION
  Report Type: 
  Country: None (occurrence: None)
  Receive Date: 20110330
  Receipt Date: 20110318
  Transmission Date: 20110831
  Serious: Yes (Other)
  Sender: FDA-Public Use
  Company Number: US-PFIZER INC-US-WYE-H05030108

PATIENT
  Sex: Female

DRUGS (2)
  1. PREMPHASE (PREMARIN;CYCRIN 14/14) [Suspect]
     Indication: HORMONE REPLACEMENT THERAPY
     Dosage: UNK
     Dates: start: 19940101, end: 19991201
  2. ATENOLOL [Concomitant]
     Indication: HEART RATE INCREASED
     Dosage: UNK
     Dates: start: 19840101

REACTIONS (1)
  - BREAST CANCER [None]
